FAERS Safety Report 12846556 (Version 3)
Quarter: 2020Q2

REPORT INFORMATION
  Report Type: Spontaneous
  Country: US (occurrence: US)
  Receive Date: 20161014
  Receipt Date: 20200522
  Transmission Date: 20200713
  Serious: Yes (Death, Hospitalization, Other)
  Sender: FDA-Public Use
  Company Number: US-009507513-1610USA005408

PATIENT
  Sex: Male
  Weight: 108.39 kg

DRUGS (1)
  1. JANUVIA [Suspect]
     Active Substance: SITAGLIPTIN PHOSPHATE
     Dosage: 100 MILLIGRAM, QD
     Route: 048
     Dates: start: 20080505, end: 201502

REACTIONS (8)
  - Acute respiratory failure [Unknown]
  - Acute kidney injury [Unknown]
  - Sepsis [Unknown]
  - Malnutrition [Unknown]
  - Pneumonia [Unknown]
  - Cholecystitis infective [Unknown]
  - Adenocarcinoma pancreas [Fatal]
  - Chronic obstructive pulmonary disease [Unknown]

NARRATIVE: CASE EVENT DATE: 201409
